FAERS Safety Report 21889679 (Version 2)
Quarter: 2023Q1

REPORT INFORMATION
  Report Type: Report from Study
  Country: BD (occurrence: BD)
  Receive Date: 20230120
  Receipt Date: 20230124
  Transmission Date: 20230417
  Serious: Yes (Death, Hospitalization)
  Sender: FDA-Public Use
  Company Number: BD-002147023-NVSC2023BD012472

PATIENT
  Age: 69 Year
  Sex: Female
  Weight: 65 kg

DRUGS (1)
  1. ACLASTA [Suspect]
     Active Substance: ZOLEDRONIC ACID
     Indication: Osteoporosis
     Dosage: 5 MG, Q12MO
     Route: 042
     Dates: start: 202102, end: 202102

REACTIONS (1)
  - Hepatic cirrhosis [Fatal]

NARRATIVE: CASE EVENT DATE: 20210301
